FAERS Safety Report 22136789 (Version 1)
Quarter: 2023Q1

REPORT INFORMATION
  Report Type: Spontaneous
  Country: US (occurrence: None)
  Receive Date: 20230323
  Receipt Date: 20230323
  Transmission Date: 20230418
  Serious: Yes (Other)
  Sender: FDA-Public Use
  Company Number: None

PATIENT
  Sex: 0

DRUGS (1)
  1. VYVANSE [Suspect]
     Active Substance: LISDEXAMFETAMINE DIMESYLATE
     Indication: Attention deficit hyperactivity disorder
     Dosage: OTHER QUANTITY : 90 CAPSULE(S);?
     Route: 048
     Dates: start: 20230224

REACTIONS (4)
  - Depression [None]
  - Incorrect dose administered [None]
  - Product formulation issue [None]
  - Product physical issue [None]

NARRATIVE: CASE EVENT DATE: 20230224
